FAERS Safety Report 4539888-2 (Version None)
Quarter: 2004Q4

REPORT INFORMATION
  Report Type: 
  Country: None (occurrence: None)
  Receive Date: 20041223
  Receipt Date: 20041213
  Transmission Date: 20050328
  Serious: Yes (Hospitalization, Other)
  Sender: FDA-Public Use
  Company Number: 2004114443

PATIENT
  Sex: Female

DRUGS (5)
  1. DILANTIN KAPSEAL [Suspect]
     Indication: CONVULSION
     Dosage: 300 MG (300 MG, 1 IN 1 D), ORAL
     Route: 048
  2. CLOBAZAM (CLOBAZAM) [Concomitant]
  3. VALPROATE SODIUM [Concomitant]
  4. VITAMINS (VITAMINS) [Concomitant]
  5. CALCIUM (CALCIUM) [Concomitant]

REACTIONS (7)
  - DRUG INEFFECTIVE [None]
  - HEPATIC NEOPLASM [None]
  - HEPATOSPLENOMEGALY [None]
  - INGUINAL HERNIA [None]
  - OSTEOPENIA [None]
  - PSEUDO LYMPHOMA [None]
  - WEIGHT INCREASED [None]
